FAERS Safety Report 7368918-8 (Version None)
Quarter: 2011Q1

REPORT INFORMATION
  Report Type: 
  Country: None (occurrence: None)
  Receive Date: 20110308
  Receipt Date: 20100204
  Transmission Date: 20110831
  Serious: Yes (Hospitalization, Other)
  Sender: FDA-Public Use
  Company Number: 2010SP007164

PATIENT
  Age: 23 Year
  Sex: Female
  Weight: 46.2669 kg

DRUGS (2)
  1. NUVARING [Suspect]
     Indication: CONTRACEPTION
     Dosage: 1 DF
     Dates: start: 20050101
  2. NUVARING [Suspect]
     Indication: CONTRACEPTION
     Dosage: 1 DF
     Dates: start: 20070901, end: 20080101

REACTIONS (4)
  - PULMONARY EMBOLISM [None]
  - LEUKOCYTOSIS [None]
  - CHEST PAIN [None]
  - HYPERCOAGULATION [None]
